FAERS Safety Report 22949361 (Version 8)
Quarter: 2023Q4

REPORT INFORMATION
  Report Type: Report from Study
  Country: RU (occurrence: RU)
  Receive Date: 20230915
  Receipt Date: 20231210
  Transmission Date: 20240110
  Serious: Yes (Other)
  Sender: FDA-Public Use
  Company Number: RU-002147023-NVSC2023RU197770

PATIENT
  Age: 2 Month
  Sex: Female
  Weight: 6.6 kg

DRUGS (7)
  1. ZOLGENSMA [Suspect]
     Active Substance: ONASEMNOGENE ABEPARVOVEC-XIOI
     Indication: Spinal muscular atrophy
     Dosage: 1 DOSAGE FORM, ONCE/SINGLE
     Route: 041
     Dates: start: 20230804, end: 20230804
  2. PREDNISOLONE [Concomitant]
     Active Substance: PREDNISOLONE
     Indication: Product used for unknown indication
     Dosage: 7.5 MG (1 TAB. + 1/2 TAB.)
     Route: 048
     Dates: start: 20230803
  3. ESOMEPRAZOLE [Concomitant]
     Active Substance: ESOMEPRAZOLE
     Indication: Product used for unknown indication
     Dosage: 2.5 MG (1/2 SACHET), QD (FOR 3?4 WEEKS)
     Route: 048
     Dates: start: 20230803
  4. ESOMEPRAZOLE [Concomitant]
     Active Substance: ESOMEPRAZOLE
     Dosage: 2.5 MG (1/2 SACHET), QD
     Route: 048
     Dates: start: 20230803
  5. ALUMINIUM PHOSPHATE GEL [Concomitant]
     Indication: Product used for unknown indication
     Dosage: 1/4 SACHET, TID
     Route: 048
     Dates: start: 20230803
  6. ALUMINIUM PHOSPHATE GEL [Concomitant]
     Dosage: 1/4 SACHET, TID
     Route: 048
     Dates: start: 20230803
  7. CHOLECALCIFEROL [Concomitant]
     Active Substance: CHOLECALCIFEROL
     Indication: Product used for unknown indication
     Dosage: 1 DOSAGE FORM
     Route: 048
     Dates: start: 20230803

REACTIONS (35)
  - Rash [Recovered/Resolved]
  - Haematochezia [Recovered/Resolved]
  - Fever neonatal [Recovered/Resolved]
  - Thrombocytopenia neonatal [Recovered/Resolved]
  - Thrombotic microangiopathy [Recovered/Resolved]
  - Ascites [Recovered/Resolved]
  - Retinal vascular disorder [Recovered/Resolved]
  - Hyperkalaemia [Recovered/Resolved]
  - Thrombocytosis [Recovered/Resolved]
  - Decreased appetite [Recovered/Resolved]
  - Infantile vomiting [Recovered/Resolved]
  - Abdominal distension [Recovered/Resolved]
  - Dyspepsia [Recovered/Resolved]
  - Metabolic alkalosis [Recovered/Resolved]
  - Splenomegaly [Recovered/Resolved]
  - Electrolyte imbalance [Recovered/Resolved]
  - Lymphopenia [Recovered/Resolved]
  - Neutrophilia [Recovered/Resolved]
  - Anxiety [Recovered/Resolved]
  - Periorbital swelling [Recovered/Resolved]
  - Hepatic enzyme increased [Recovered/Resolved]
  - Monocytosis [Recovered/Resolved]
  - Proteinuria [Recovered/Resolved]
  - Haematuria [Recovered/Resolved]
  - Anaemia neonatal [Recovered/Resolved]
  - Hypercoagulation [Recovered/Resolved]
  - Lethargy [Recovered/Resolved]
  - Platelet aggregation increased [Unknown]
  - Abnormal faeces [Unknown]
  - Mood swings [Unknown]
  - Crying [Unknown]
  - Listless [Unknown]
  - Restlessness [Unknown]
  - Screaming [Unknown]
  - Urine output decreased [Unknown]

NARRATIVE: CASE EVENT DATE: 20230805
